FAERS Safety Report 19480565 (Version 1)
Quarter: 2021Q2

REPORT INFORMATION
  Report Type: Spontaneous
  Country: US (occurrence: US)
  Receive Date: 20210630
  Receipt Date: 20210630
  Transmission Date: 20210717
  Serious: No
  Sender: FDA-Public Use
  Company Number: US-FOUNDATIONCONSUMERHC-2021-US-007422

PATIENT
  Age: 27 Year
  Sex: Female
  Weight: 52.16 kg

DRUGS (1)
  1. PLAN B ONE?STEP [Suspect]
     Active Substance: LEVONORGESTREL
     Indication: POST COITAL CONTRACEPTION
     Dosage: 1.5 MG X UNKNOWN NUMBER OF DOSES ABOUT ONCE PER MONTH
     Route: 048
     Dates: end: 202103

REACTIONS (5)
  - Intentional product misuse [Unknown]
  - Hormone level abnormal [Recovered/Resolved]
  - Menstruation irregular [Not Recovered/Not Resolved]
  - Product use in unapproved indication [Recovered/Resolved]
  - Vaginal haemorrhage [Recovered/Resolved]
